FAERS Safety Report 13800912 (Version 1)
Quarter: 2017Q3

REPORT INFORMATION
  Report Type: Spontaneous
  Country: IT (occurrence: IT)
  Receive Date: 20170727
  Receipt Date: 20170727
  Transmission Date: 20171127
  Serious: Yes (Death, Life-Threatening)
  Sender: FDA-Public Use
  Company Number: IT-PFIZER INC-729580

PATIENT
  Age: 58 Year
  Sex: Male

DRUGS (3)
  1. DAUNORUBICIN [Suspect]
     Active Substance: DAUNORUBICIN
     Indication: PRODUCT USED FOR UNKNOWN INDICATION
     Dosage: 90 MG, UNK
     Dates: start: 20060612, end: 20060616
  2. CYTARABINE. [Suspect]
     Active Substance: CYTARABINE
     Indication: PRODUCT USED FOR UNKNOWN INDICATION
     Dosage: 180 MG, UNK
     Dates: start: 20060612, end: 20060626
  3. ETOPOSIDE. [Suspect]
     Active Substance: ETOPOSIDE
     Indication: PRODUCT USED FOR UNKNOWN INDICATION
     Dosage: 90 MG, UNK
     Dates: start: 20060612, end: 20060616

REACTIONS (2)
  - Pneumonia [Fatal]
  - Respiratory failure [Fatal]

NARRATIVE: CASE EVENT DATE: 20060705
